FAERS Safety Report 20168333 (Version 14)
Quarter: 2023Q4

REPORT INFORMATION
  Report Type: Report from Study
  Country: US (occurrence: None)
  Receive Date: 20211210
  Receipt Date: 20231003
  Transmission Date: 20240109
  Serious: Yes (Other)
  Sender: FDA-Public Use
  Company Number: US-ROCHE-2865709

PATIENT
  Age: 67 Year
  Sex: Male
  Weight: 111 kg

DRUGS (52)
  1. RANIBIZUMAB [Suspect]
     Active Substance: RANIBIZUMAB
     Indication: Diabetic retinal oedema
     Dosage: RANIBIZUMAB VIA PORT DELIVERY SYSTEM EVERY 24 WEEKS?DOSE OF RANIBIZUMAB FIRST ADMINISTERED WAS 10 MG
     Route: 050
     Dates: start: 20210223
  2. RANIBIZUMAB [Suspect]
     Active Substance: RANIBIZUMAB
     Dates: start: 20210615
  3. RANIBIZUMAB [Suspect]
     Active Substance: RANIBIZUMAB
  4. LANTUS [Concomitant]
     Active Substance: INSULIN GLARGINE
     Indication: Diabetes mellitus
     Dosage: 30 U
     Route: 030
     Dates: start: 201908, end: 20220321
  5. ROSUVASTATIN [Concomitant]
     Active Substance: ROSUVASTATIN
     Indication: Hyperlipidaemia
     Dosage: 25 MG/ML
     Route: 048
     Dates: start: 2018
  6. TAMSULOSIN [Concomitant]
     Active Substance: TAMSULOSIN
     Indication: Prostatomegaly
     Dosage: 0.4 MG/ML
     Route: 048
     Dates: start: 2011
  7. LYRICA [Concomitant]
     Active Substance: PREGABALIN
     Indication: Neuropathy peripheral
     Dosage: 75 MG/ML
     Route: 048
     Dates: start: 2014
  8. AMLODIPINE [Concomitant]
     Active Substance: AMLODIPINE BESYLATE
     Indication: Hypertension
     Dosage: 5 MG/ML
     Route: 048
     Dates: start: 2018
  9. MOMETASONE [Concomitant]
     Active Substance: MOMETASONE
     Indication: Eczema
     Route: 061
     Dates: start: 20171220
  10. HYDROCODONE [Concomitant]
     Active Substance: HYDROCODONE
     Dosage: 1 TABLET AS NEEDED
     Route: 048
     Dates: start: 20210605, end: 20210705
  11. BESIVANCE [Concomitant]
     Active Substance: BESIFLOXACIN
     Dosage: 1 GTT
     Route: 047
     Dates: start: 20210611, end: 20210705
  12. BESIVANCE [Concomitant]
     Active Substance: BESIFLOXACIN
     Route: 047
     Dates: start: 20211206, end: 20211209
  13. BESIVANCE [Concomitant]
     Active Substance: BESIFLOXACIN
     Route: 047
     Dates: start: 20220517, end: 20220519
  14. BESIVANCE [Concomitant]
     Active Substance: BESIFLOXACIN
     Route: 047
     Dates: start: 20221031, end: 20221101
  15. BESIVANCE [Concomitant]
     Active Substance: BESIFLOXACIN
     Route: 047
     Dates: start: 20230927
  16. LOTEMAX [Concomitant]
     Active Substance: LOTEPREDNOL ETABONATE
     Route: 047
     Dates: start: 20210611, end: 20210705
  17. BROMSITE [Concomitant]
     Active Substance: BROMFENAC SODIUM
     Route: 047
     Dates: start: 20210611, end: 20210705
  18. ALEVE [Concomitant]
     Active Substance: NAPROXEN SODIUM
     Indication: Cough
     Dosage: 220 MG/ML
     Route: 048
     Dates: start: 20210622, end: 20210705
  19. ALEVE [Concomitant]
     Active Substance: NAPROXEN SODIUM
     Route: 048
     Dates: start: 20211228
  20. DOXYCYCLINE [Concomitant]
     Active Substance: DOXYCYCLINE
     Dosage: DOSE: 100MG/ML
     Route: 048
     Dates: start: 20210818, end: 20210920
  21. CEFTRIAXONE [Concomitant]
     Active Substance: CEFTRIAXONE
     Dosage: DOSE: 500 MG/ML
     Route: 042
     Dates: start: 20210818, end: 20210920
  22. TAMSULOSIN [Concomitant]
     Active Substance: TAMSULOSIN
     Indication: Prostatomegaly
     Route: 048
     Dates: start: 20211120
  23. POTASSIUM CITRATE [Concomitant]
     Active Substance: POTASSIUM CITRATE
     Dosage: 1620 MG/ML
     Route: 048
     Dates: start: 20211120
  24. BUMETANIDE [Concomitant]
     Active Substance: BUMETANIDE
     Indication: Oedema peripheral
     Dosage: 1 MG/ML
     Route: 048
     Dates: start: 20211120, end: 20220630
  25. BUMETANIDE [Concomitant]
     Active Substance: BUMETANIDE
     Indication: Oedema
     Dosage: MEDICATION DOSE 1 MG/ML
     Route: 048
     Dates: start: 20220712
  26. CALCITRIOL [Concomitant]
     Active Substance: CALCITRIOL
     Indication: Vitamin D deficiency
     Dosage: 0.25 UG
     Route: 048
     Dates: start: 20211120
  27. AMLODIPINE BESYLATE [Concomitant]
     Active Substance: AMLODIPINE BESYLATE
     Indication: Hypertension
     Route: 048
     Dates: start: 20211120
  28. HYDROXYZINE [Concomitant]
     Active Substance: HYDROXYZINE HYDROCHLORIDE
     Indication: Anxiety
     Route: 048
     Dates: start: 20211120
  29. DIETARY SUPPLEMENT [Concomitant]
     Active Substance: DIETARY SUPPLEMENT
     Route: 048
     Dates: start: 20220221
  30. ROPINIROLE HYDROCHLORIDE [Concomitant]
     Active Substance: ROPINIROLE HYDROCHLORIDE
     Indication: Restless legs syndrome
     Route: 048
     Dates: start: 20220214
  31. RANIBIZUMAB [Concomitant]
     Active Substance: RANIBIZUMAB
     Dosage: DOSE OF STUDY FIRST ADMINISTRATRED 6MG/ML ?DOSE LAST STUDY DRUG ADMIN PRIOR SAE 50 MG/ML?START DATE
     Route: 050
     Dates: start: 20210719
  32. HUMALOG [Concomitant]
     Active Substance: INSULIN LISPRO
     Indication: Diabetes mellitus
     Dosage: 1U AS NEEDED
     Route: 030
     Dates: start: 201908, end: 20220321
  33. HUMALOG [Concomitant]
     Active Substance: INSULIN LISPRO
     Dosage: DOSE 1U
     Route: 058
     Dates: start: 20220321
  34. ZOFRAN [Concomitant]
     Active Substance: ONDANSETRON HYDROCHLORIDE
     Indication: Prophylaxis of nausea and vomiting
     Dosage: MEDICATION DOSE 4 MG/ML.
     Route: 048
     Dates: start: 20220517, end: 20220517
  35. AURYXIA [Concomitant]
     Active Substance: TETRAFERRIC TRICITRATE DECAHYDRATE
     Indication: Blood phosphorus increased
     Dosage: 210 MG/ML
     Route: 048
     Dates: start: 20220711
  36. NORCO [Concomitant]
     Active Substance: ACETAMINOPHEN\HYDROCODONE BITARTRATE
     Dosage: 1
     Route: 048
     Dates: start: 20220810, end: 20220913
  37. CALCIUM CARBONATE [Concomitant]
     Active Substance: CALCIUM CARBONATE
     Indication: Hypocalcaemia
     Dosage: 1000 MG/ML
     Route: 048
     Dates: start: 20230122
  38. DIPHENHYDRAMINE [Concomitant]
     Active Substance: DIPHENHYDRAMINE
     Indication: Insomnia
     Dosage: 50 MG/ML
     Route: 048
     Dates: start: 20221218
  39. MECLIZINE [Concomitant]
     Active Substance: MECLIZINE HYDROCHLORIDE
     Indication: COVID-19
     Dosage: 12.5 MG/ML
     Route: 048
     Dates: start: 20230211
  40. METOPROLOL [Concomitant]
     Active Substance: METOPROLOL
     Indication: Hypertension
     Dosage: 25 MG/ML
     Route: 048
     Dates: start: 20230214
  41. ONDANSETRON [Concomitant]
     Active Substance: ONDANSETRON
     Dosage: 4 MG/ML
     Route: 048
     Dates: start: 20230214
  42. SODIUM BICARBONATE [Concomitant]
     Active Substance: SODIUM BICARBONATE
     Dosage: 1300 MG/ML
     Route: 048
     Dates: start: 20230214
  43. IRON [Concomitant]
     Active Substance: IRON
     Dates: start: 20230312
  44. OFLOXACIN [Concomitant]
     Active Substance: OFLOXACIN
     Route: 047
     Dates: start: 20230412
  45. KETOROLAC [Concomitant]
     Active Substance: KETOROLAC TROMETHAMINE
     Route: 047
     Dates: start: 20230530, end: 20230802
  46. KETOROLAC [Concomitant]
     Active Substance: KETOROLAC TROMETHAMINE
     Route: 047
     Dates: start: 20230613, end: 20230802
  47. MOXIFLOXACIN [Concomitant]
     Active Substance: MOXIFLOXACIN
     Route: 047
     Dates: start: 20230530, end: 20230802
  48. MOXIFLOXACIN [Concomitant]
     Active Substance: MOXIFLOXACIN
     Route: 047
     Dates: start: 20230613, end: 20230802
  49. PREDNISOLONE [Concomitant]
     Active Substance: PREDNISOLONE
     Route: 047
     Dates: start: 20230530, end: 20230802
  50. PREDNISOLONE [Concomitant]
     Active Substance: PREDNISOLONE
     Route: 047
     Dates: start: 20230613, end: 20230802
  51. ELIQUIS [Concomitant]
     Active Substance: APIXABAN
     Route: 048
     Dates: start: 20230606
  52. MIDODRINE [Concomitant]
     Active Substance: MIDODRINE
     Indication: Dialysis hypotension
     Route: 048
     Dates: start: 20230727

REACTIONS (3)
  - Visual impairment [Recovered/Resolved]
  - Vitreous haemorrhage [Not Recovered/Not Resolved]
  - Cataract [Recovered/Resolved]

NARRATIVE: CASE EVENT DATE: 20210621
